FAERS Safety Report 12943758 (Version 1)
Quarter: 2016Q4

REPORT INFORMATION
  Report Type: Spontaneous
  Country: US (occurrence: US)
  Receive Date: 20161115
  Receipt Date: 20161115
  Transmission Date: 20170207
  Serious: No
  Sender: FDA-Public Use
  Company Number: US-ROCHE-1735300

PATIENT
  Sex: Female
  Weight: 56.3 kg

DRUGS (3)
  1. ELIXIR OF UNKNOWN NAME [Concomitant]
  2. PROMETHAZINE [Concomitant]
     Active Substance: PROMETHAZINE\PROMETHAZINE HYDROCHLORIDE
  3. TAMIFLU [Suspect]
     Active Substance: OSELTAMIVIR PHOSPHATE
     Indication: INFLUENZA
     Route: 048
     Dates: start: 20160307

REACTIONS (5)
  - Vomiting [Recovered/Resolved]
  - Influenza [Recovered/Resolved]
  - Drug ineffective [Not Recovered/Not Resolved]
  - Asthenia [Recovered/Resolved]
  - Nausea [Recovered/Resolved]
